FAERS Safety Report 5320885-4 (Version None)
Quarter: 2007Q2

REPORT INFORMATION
  Report Type: 
  Country: None (occurrence: None)
  Receive Date: 20070504
  Receipt Date: 20070416
  Transmission Date: 20071010
  Serious: Yes (Other)
  Sender: FDA-Public Use
  Company Number: GXKR2007HU03787

PATIENT
  Sex: Female
  Weight: 80 kg

DRUGS (1)
  1. TRAMADOL HCL [Suspect]
     Indication: MUSCULOSKELETAL PAIN
     Dosage: 10 DRP, QD
     Dates: start: 20070302, end: 20070302

REACTIONS (3)
  - APHONIA [None]
  - DIARRHOEA [None]
  - VOMITING [None]
